FAERS Safety Report 10703875 (Version 1)
Quarter: 2015Q1

REPORT INFORMATION
  Report Type: Report from Study
  Country: US (occurrence: US)
  Receive Date: 20150112
  Receipt Date: 20150112
  Transmission Date: 20150721
  Serious: Yes (Other)
  Sender: FDA-Public Use
  Company Number: PHEH2014US026219

PATIENT
  Age: 82 Year
  Sex: Male

DRUGS (2)
  1. AFINITOR [Suspect]
     Active Substance: EVEROLIMUS
     Indication: RENAL CANCER
     Dosage: 10 MG, QD
     Route: 048
  2. AFINITOR [Suspect]
     Active Substance: EVEROLIMUS
     Indication: BONE CANCER
     Dosage: 7.5 MG, QD
     Route: 048

REACTIONS (9)
  - Second primary malignancy [Unknown]
  - Metastases to bone [Unknown]
  - Neoplasm prostate [Unknown]
  - Malignant melanoma [Unknown]
  - Oesophagitis [Unknown]
  - Decreased appetite [Unknown]
  - Hypertension [Unknown]
  - Abdominal pain [Unknown]
  - Mucosal inflammation [Unknown]

NARRATIVE: CASE EVENT DATE: 20130603
